FAERS Safety Report 7776909-8 (Version None)
Quarter: 2011Q3

REPORT INFORMATION
  Report Type: 
  Country: None (occurrence: None)
  Receive Date: 20110923
  Receipt Date: 20110923
  Transmission Date: 20111222
  Serious: No
  Sender: FDA-Public Use
  Company Number: None

PATIENT
  Age: 69 Year
  Sex: Male
  Weight: 134.2 kg

DRUGS (1)
  1. NIASPAN [Suspect]
     Indication: HYPERLIPIDAEMIA
     Dosage: 500 MG HS PO
     Route: 048

REACTIONS (1)
  - FLUSHING [None]
